FAERS Safety Report 7894233-X (Version None)
Quarter: 2011Q4

REPORT INFORMATION
  Report Type: 
  Country: None (occurrence: None)
  Receive Date: 20111104
  Receipt Date: 20111026
  Transmission Date: 20120403
  Serious: Yes (Life-Threatening, Other)
  Sender: FDA-Public Use
  Company Number: MW-ABBOTT-11P-100-0855043-00

PATIENT
  Sex: Female
  Weight: 55 kg

DRUGS (5)
  1. LOPINAVIR/RITONAVIR [Suspect]
     Indication: HIV INFECTION
     Dosage: 400/100MG
     Route: 048
     Dates: start: 20110812
  2. STAVUDINE [Concomitant]
     Indication: HIV INFECTION
     Route: 048
     Dates: start: 20110831
  3. FERROUS SULFATE TAB [Concomitant]
     Indication: ANAEMIA OF PREGNANCY
  4. LAMIVUDINE (EPIVIR HBV) [Concomitant]
     Indication: HIV INFECTION
     Route: 048
     Dates: start: 20110912
  5. COTRIM [Concomitant]
     Indication: PROPHYLAXIS

REACTIONS (2)
  - ABORTION MISSED [None]
  - HAEMOGLOBIN DECREASED [None]
